FAERS Safety Report 5471650-9 (Version None)
Quarter: 2007Q3

REPORT INFORMATION
  Report Type: 
  Country: None (occurrence: None)
  Receive Date: 20070928
  Receipt Date: 20070301
  Transmission Date: 20080115
  Serious: No
  Sender: FDA-Public Use
  Company Number: US-BRISTOL-MYERS SQUIBB COMPANY-13697636

PATIENT
  Age: 36 Year
  Sex: Female
  Weight: 73 kg

DRUGS (12)
  1. DEFINITY [Suspect]
     Indication: STRESS ECHOCARDIOGRAM
     Route: 040
  2. YASMIN [Concomitant]
  3. TILADE [Concomitant]
  4. PROPRANOLOL [Concomitant]
  5. RITALIN [Concomitant]
  6. WELLBUTRIN [Concomitant]
  7. TRAZODONE HCL [Concomitant]
  8. SEROQUEL [Concomitant]
  9. ALEVE [Concomitant]
  10. CALCIUM [Concomitant]
  11. MULTI-VITAMIN [Concomitant]
  12. ALBUTEROL [Concomitant]

REACTIONS (1)
  - DYSPNOEA [None]
